FAERS Safety Report 9671868 (Version 3)
Quarter: 2014Q1

REPORT INFORMATION
  Report Type: Spontaneous
  Country: JP (occurrence: JP)
  Receive Date: 20131106
  Receipt Date: 20140107
  Transmission Date: 20141002
  Serious: Yes (Hospitalization)
  Sender: FDA-Public Use
  Company Number: JP-BRISTOL-MYERS SQUIBB COMPANY-19761782

PATIENT
  Age: 73 Year
  Sex: Male
  Weight: 50 kg

DRUGS (1)
  1. ERBITUX SOLN FOR INF 5MG/ML [Suspect]
     Indication: HYPOPHARYNGEAL CANCER
     Dosage: 19APR13:DOSE REDUCED TO 250MG/M2,26APR13:3RD INF,12-12APR13,19APR-31MAY13
     Route: 041
     Dates: start: 20130412

REACTIONS (1)
  - Cerebral infarction [Recovered/Resolved]
